FAERS Safety Report 4974396-6 (Version None)
Quarter: 2006Q2

REPORT INFORMATION
  Report Type: 
  Country: None (occurrence: None)
  Receive Date: 20060410
  Receipt Date: 20060331
  Transmission Date: 20061013
  Serious: Yes (Hospitalization)
  Sender: FDA-Public Use
  Company Number: 2006007844

PATIENT
  Age: 83 Year
  Sex: Female

DRUGS (8)
  1. ZOLOFT [Suspect]
     Indication: ILL-DEFINED DISORDER
  2. DILTIAZEM [Suspect]
     Indication: ILL-DEFINED DISORDER
     Dosage: 180 MG, ORAL
     Route: 048
  3. ASPIRIN [Concomitant]
  4. SINEMET (CABIDOPA, LEVODOPA) [Concomitant]
  5. REQUIP [Suspect]
     Indication: ILL-DEFINED DISORDER
  6. LABETALOL HCL [Suspect]
     Indication: ILL-DEFINED DISORDER
  7. PLAVIX [Suspect]
     Indication: ILL-DEFINED DISORDER
  8. HYZAAR [Suspect]
     Indication: ILL-DEFINED DISORDER

REACTIONS (9)
  - CARDIAC ARREST [None]
  - FEMUR FRACTURE [None]
  - HIP FRACTURE [None]
  - MYOCARDIAL INFARCTION [None]
  - OSTEOARTHRITIS [None]
  - OSTEOPOROSIS [None]
  - PNEUMONIA [None]
  - ROAD TRAFFIC ACCIDENT [None]
  - THROMBOSIS [None]
